FAERS Safety Report 5798098-1 (Version None)
Quarter: 2008Q3

REPORT INFORMATION
  Report Type: 
  Country: None (occurrence: None)
  Receive Date: 20080702
  Receipt Date: 20071016
  Transmission Date: 20090109
  Serious: No
  Sender: FDA-Public Use
  Company Number: US-ASTRAZENECA-2007UW20245

PATIENT
  Age: 86 Year
  Sex: Male
  Weight: 76.8 kg

DRUGS (6)
  1. ZOLADEX [Suspect]
     Indication: PROSTATE CANCER METASTATIC
     Route: 058
     Dates: start: 20020603
  2. ZOLADEX [Suspect]
     Route: 058
     Dates: start: 20020627, end: 20030605
  3. ZOLADEX [Suspect]
     Route: 058
     Dates: start: 20070705
  4. HYDROCHLOROTHIAZIDE [Concomitant]
  5. MINOXIDIL [Concomitant]
  6. PROSCAR [Concomitant]

REACTIONS (8)
  - ARTHRALGIA [None]
  - BACK PAIN [None]
  - BONE PAIN [None]
  - DYSPNOEA [None]
  - FATIGUE [None]
  - IRRITABILITY [None]
  - PANIC ATTACK [None]
  - TUMOUR FLARE [None]
